FAERS Safety Report 6212100-4 (Version None)
Quarter: 2009Q2

REPORT INFORMATION
  Report Type: 
  Country: None (occurrence: None)
  Receive Date: 20090602
  Receipt Date: 20090602
  Transmission Date: 20091009
  Serious: Yes (Other)
  Sender: FDA-Public Use
  Company Number: US-PFIZER INC-2009190907

PATIENT
  Sex: Male
  Weight: 49.887 kg

DRUGS (4)
  1. GEODON [Suspect]
     Indication: BIPOLAR DISORDER
     Dosage: 40 MG, 1X/DAY
     Route: 048
     Dates: start: 20090301
  2. LITHIUM CARBONATE [Concomitant]
     Dosage: UNK
     Route: 048
  3. RISPERDAL [Concomitant]
     Dosage: UNK
     Route: 048
  4. BENADRYL [Concomitant]
     Dosage: UNK
     Route: 048

REACTIONS (4)
  - ADVERSE REACTION [None]
  - DRUG PRESCRIBING ERROR [None]
  - IMPULSIVE BEHAVIOUR [None]
  - SUICIDAL IDEATION [None]
